FAERS Safety Report 4684606-0 (Version None)
Quarter: 2005Q2

REPORT INFORMATION
  Report Type: 
  Country: None (occurrence: None)
  Receive Date: 20050531
  Receipt Date: 20040517
  Transmission Date: 20051028
  Serious: Yes (Life-Threatening)
  Sender: FDA-Public Use
  Company Number: 200413817US

PATIENT
  Sex: Female
  Weight: 172.7 kg

DRUGS (7)
  1. LOVENOX [Suspect]
     Indication: MYOCARDIAL INFARCTION
     Dosage: 30 MG ONCE IV
     Route: 042
     Dates: start: 20040514, end: 20040514
  2. LOVENOX [Suspect]
     Indication: MYOCARDIAL INFARCTION
     Dosage: 1 MG/KG BID SC
     Route: 058
     Dates: start: 20040514
  3. REOPRO [Concomitant]
  4. ASPIRIN [Concomitant]
  5. METOPROLOL [Concomitant]
  6. NITROGLYCERIN [Concomitant]
  7. ORAL ANTIDIABETIC [Concomitant]

REACTIONS (1)
  - THROMBOSIS [None]
